FAERS Safety Report 11867528 (Version 2)
Quarter: 2016Q1

REPORT INFORMATION
  Report Type: Spontaneous
  Country: US (occurrence: US)
  Receive Date: 20151224
  Receipt Date: 20160208
  Transmission Date: 20160526
  Serious: No
  Sender: FDA-Public Use
  Company Number: US-GLAXOSMITHKLINE-US2015GSK179849

PATIENT
  Sex: Female

DRUGS (1)
  1. ADVAIR HFA [Suspect]
     Active Substance: FLUTICASONE PROPIONATE\SALMETEROL XINAFOATE
     Indication: PRODUCT USED FOR UNKNOWN INDICATION
     Dosage: UNK

REACTIONS (12)
  - Drug dose omission [Unknown]
  - Osteoporosis [Unknown]
  - Limb discomfort [Unknown]
  - Nerve injury [Unknown]
  - Arthralgia [Unknown]
  - Bone pain [Unknown]
  - Bone disorder [Unknown]
  - Gait disturbance [Unknown]
  - Inappropriate schedule of drug administration [Unknown]
  - Back disorder [Unknown]
  - Muscle injury [Unknown]
  - Pain [Unknown]
